FAERS Safety Report 4851817-0 (Version None)
Quarter: 2005Q4

REPORT INFORMATION
  Report Type: 
  Country: None (occurrence: None)
  Receive Date: 20051209
  Receipt Date: 20051129
  Transmission Date: 20060501
  Serious: Yes (Other)
  Sender: FDA-Public Use
  Company Number: 2005163387

PATIENT
  Age: 65 Year
  Sex: Female

DRUGS (2)
  1. DILANTIN KAPSEAL [Suspect]
     Indication: CONVULSION
     Dosage: 300 MG (100 MG, 3 IN 1 D), ORAL
     Route: 048
     Dates: start: 20030101
  2. ARICEPT [Concomitant]

REACTIONS (3)
  - BRONCHITIS [None]
  - FALL [None]
  - RIB FRACTURE [None]
